FAERS Safety Report 6122248-0 (Version None)
Quarter: 2009Q1

REPORT INFORMATION
  Report Type: 
  Country: None (occurrence: None)
  Receive Date: 20090316
  Receipt Date: 20090223
  Transmission Date: 20090719
  Serious: Yes (Hospitalization)
  Sender: FDA-Public Use
  Company Number: CFNP-392 (2)

PATIENT
  Age: 1 Year
  Sex: Female

DRUGS (7)
  1. MEIACT MS FINE GRANULES (CEFDITOREN PIVOXIL) [Suspect]
     Indication: OTITIS MEDIA
     Dosage: 81 MG ORALLY
     Route: 048
  2. MEIACT MS FINE GRANULES (CEFDITOREN PIVOXIL) [Suspect]
     Indication: OTITIS MEDIA
     Dosage: 81 MG ORALLY
     Route: 048
  3. ANTIBIOTICS-RESUSTANT LACTIC ACID BACTERIAE [Concomitant]
  4. L-CARBOCISTEINE [Concomitant]
  5. AMBROXOL HYDROCHLORIDE [Concomitant]
  6. PROCATEROL HYDROCHLORIDE HYDRATE [Concomitant]
  7. CYPROHEPTADINE HYDROCHLORIDDE HYDRATE [Concomitant]

REACTIONS (3)
  - CARNITINE DECREASED [None]
  - HYPOGLYCAEMIA [None]
  - UNRESPONSIVE TO STIMULI [None]
